FAERS Safety Report 4615916-0 (Version None)
Quarter: 2005Q1

REPORT INFORMATION
  Report Type: 
  Country: None (occurrence: None)
  Receive Date: 20050318
  Receipt Date: 20050309
  Transmission Date: 20050727
  Serious: Yes (Hospitalization)
  Sender: FDA-Public Use
  Company Number: RS005019-J

PATIENT
  Age: 79 Year
  Sex: Male
  Weight: 35 kg

DRUGS (9)
  1. RABEPRAZOLE SODIUM [Suspect]
     Indication: GASTRIC ULCER HAEMORRHAGE
     Dosage: 20 MG, 1 IN 1 D, ORAL
     Route: 048
     Dates: start: 20041225, end: 20050114
  2. OMEPRAZOLE [Suspect]
     Dosage: 20 MG, 1 IN 1 D
     Dates: start: 20041224, end: 20041224
  3. FAMOTIDINE [Suspect]
     Dosage: 40 MG, 1 IN 1 D, ORAL
     Route: 048
     Dates: start: 20050115, end: 20050223
  4. CONTRAST MEDIA (CONTRAST MEDIA) [Concomitant]
  5. IOPAMIDOL [Concomitant]
  6. ADONA (AC-17)              (CARBAZOCHROME SODIUM SULFONATE) [Concomitant]
  7. MAGLAX (MAGNESIUM OXIDE) [Concomitant]
  8. FERROMIA (FERROUS CITRATE) [Concomitant]
  9. LEVOFLOXACIN [Concomitant]

REACTIONS (8)
  - ACUTE PRERENAL FAILURE [None]
  - DEHYDRATION [None]
  - DRUG HYPERSENSITIVITY [None]
  - DRUG LEVEL INCREASED [None]
  - HYPOXIA [None]
  - NEPHROPATHY [None]
  - NEPHROSCLEROSIS [None]
  - OVERDOSE [None]
